FAERS Safety Report 13929803 (Version 1)
Quarter: 2017Q3

REPORT INFORMATION
  Report Type: Spontaneous
  Country: US (occurrence: US)
  Receive Date: 20170901
  Receipt Date: 20170901
  Transmission Date: 20171127
  Serious: Yes (Hospitalization)
  Sender: FDA-Public Use
  Company Number: US-VIFOR (INTERNATIONAL) INC.-VIT-2016-08256

PATIENT
  Sex: Female
  Weight: 108.05 kg

DRUGS (16)
  1. TRAMADOL HYDROCHLORIDE. [Concomitant]
     Active Substance: TRAMADOL HYDROCHLORIDE
  2. VELTASSA [Suspect]
     Active Substance: PATIROMER
     Indication: HYPERKALAEMIA
     Route: 048
     Dates: start: 20160603
  3. BUMETANIDE. [Concomitant]
     Active Substance: BUMETANIDE
  4. SYNTHROID [Concomitant]
     Active Substance: LEVOTHYROXINE SODIUM
  5. ACETYLSALICYLIC ACID [Concomitant]
     Active Substance: ASPIRIN
  6. DILTIAZEM HYDROCHLORIDE. [Concomitant]
     Active Substance: DILTIAZEM HYDROCHLORIDE
  7. PRIMIDONE. [Concomitant]
     Active Substance: PRIMIDONE
  8. ATORVASTATIN CALCIUM. [Concomitant]
     Active Substance: ATORVASTATIN CALCIUM
  9. CARVEDILOL. [Concomitant]
     Active Substance: CARVEDILOL
  10. LYRICA [Concomitant]
     Active Substance: PREGABALIN
  11. VELTASSA [Suspect]
     Active Substance: PATIROMER
     Dates: start: 201610, end: 20170522
  12. LORAZEPAM. [Concomitant]
     Active Substance: LORAZEPAM
  13. NEXIUM [Concomitant]
     Active Substance: ESOMEPRAZOLE MAGNESIUM
  14. NOVOLOG [Concomitant]
     Active Substance: INSULIN ASPART
  15. DIGOXIN. [Concomitant]
     Active Substance: DIGOXIN
  16. CYMBALTA [Concomitant]
     Active Substance: DULOXETINE HYDROCHLORIDE

REACTIONS (9)
  - Atrial fibrillation [Unknown]
  - Blood glucose increased [Not Recovered/Not Resolved]
  - Chronic kidney disease [Unknown]
  - Laboratory test abnormal [Not Recovered/Not Resolved]
  - Essential hypertension [Unknown]
  - Infection [Unknown]
  - Bacteraemia [Unknown]
  - Atypical pneumonia [Not Recovered/Not Resolved]
  - Diabetes mellitus [Unknown]

NARRATIVE: CASE EVENT DATE: 2016
